FAERS Safety Report 9436761 (Version 1)
Quarter: 2013Q3

REPORT INFORMATION
  Report Type: Report from Study
  Country: FR (occurrence: FR)
  Receive Date: 20130802
  Receipt Date: 20130802
  Transmission Date: 20140515
  Serious: Yes (Hospitalization, Other)
  Sender: FDA-Public Use
  Company Number: FR-ASTELLAS-2013EU004188

PATIENT
  Age: 39 Year
  Sex: Male
  Weight: 53 kg

DRUGS (3)
  1. TACROLIMUS MR4 CAPSULES [Suspect]
     Indication: LIVER TRANSPLANT
     Dosage: 6 MG, UNKNOWN/D
     Route: 065
     Dates: start: 20120627
  2. CORTICOSTEROID NOS [Concomitant]
     Dosage: UNK
     Route: 065
  3. MYCOPHENOLATE MOFETIL [Concomitant]
     Dosage: UNK
     Route: 065

REACTIONS (7)
  - Angina pectoris [Recovered/Resolved]
  - Hyperthermia [Recovered/Resolved]
  - Renal failure [Unknown]
  - Blood pressure abnormal [Recovering/Resolving]
  - Troponin increased [Recovered/Resolved]
  - Dyspnoea [Recovering/Resolving]
  - Bronchitis [Recovered/Resolved]
